FAERS Safety Report 16629010 (Version 2)
Quarter: 2019Q3

REPORT INFORMATION
  Report Type: Spontaneous
  Country: BR (occurrence: BR)
  Receive Date: 20190725
  Receipt Date: 20190826
  Transmission Date: 20191004
  Serious: Yes (Hospitalization, Other)
  Sender: FDA-Public Use
  Company Number: BR-ROCHE-2355997

PATIENT
  Sex: Male

DRUGS (6)
  1. LORAZEPAM. [Concomitant]
     Active Substance: LORAZEPAM
  2. RIVOTRIL [Suspect]
     Active Substance: CLONAZEPAM
     Indication: DEPRESSION
     Route: 065
  3. DONAREN [Concomitant]
     Active Substance: TRAZODONE HYDROCHLORIDE
  4. CARBOLITIUM [Concomitant]
     Active Substance: LITHIUM CARBONATE
  5. QUETIAPINE. [Concomitant]
     Active Substance: QUETIAPINE
  6. ALPRAZOLAM. [Concomitant]
     Active Substance: ALPRAZOLAM

REACTIONS (6)
  - Intentional self-injury [Recovering/Resolving]
  - Intentional product misuse [Unknown]
  - Slow speech [Recovering/Resolving]
  - Drug ineffective [Unknown]
  - Dizziness [Recovering/Resolving]
  - Mood altered [Recovering/Resolving]
